FAERS Safety Report 8990859 (Version 1)
Quarter: 2012Q4

REPORT INFORMATION
  Report Type: Spontaneous
  Country: RU (occurrence: None)
  Receive Date: 20121220
  Receipt Date: 20121220
  Transmission Date: 20130627
  Serious: Yes (Life-Threatening, Hospitalization)
  Sender: FDA-Public Use
  Company Number: COL_12809_2012

PATIENT
  Age: 71 Year
  Sex: Female

DRUGS (1)
  1. PALMOLIVE ANTIBACTERIAL [Suspect]
     Route: 061
     Dates: start: 20121027, end: 20121027

REACTIONS (7)
  - Hypersensitivity [None]
  - Joint swelling [None]
  - Swelling face [None]
  - Lip swelling [None]
  - Breast swelling [None]
  - Abdominal distension [None]
  - Angioedema [None]
